FAERS Safety Report 25181396 (Version 1)
Quarter: 2025Q2

REPORT INFORMATION
  Report Type: Spontaneous
  Country: SE (occurrence: SE)
  Receive Date: 20250410
  Receipt Date: 20250410
  Transmission Date: 20250716
  Serious: Yes (Hospitalization, Other)
  Sender: ASTELLAS
  Company Number: None

PATIENT
  Age: 86 Year
  Sex: Male

DRUGS (2)
  1. MIRABEGRON [Interacting]
     Active Substance: MIRABEGRON
     Indication: Product used for unknown indication
     Dosage: 25 MG, 1X1
     Route: 048
     Dates: start: 20240905, end: 20240906
  2. NUBEQA [Interacting]
     Active Substance: DAROLUTAMIDE
     Indication: Product used for unknown indication
     Route: 048
     Dates: start: 20240126, end: 20241113

REACTIONS (2)
  - Atrial fibrillation [Recovering/Resolving]
  - Drug interaction [Recovering/Resolving]

NARRATIVE: CASE EVENT DATE: 20240905
